FAERS Safety Report 9371693 (Version 3)
Quarter: 2014Q1

REPORT INFORMATION
  Report Type: Spontaneous
  Country: US (occurrence: US)
  Receive Date: 20130627
  Receipt Date: 20140117
  Transmission Date: 20141002
  Serious: No
  Sender: FDA-Public Use
  Company Number: US-PFIZER INC-2013190267

PATIENT
  Age: 68 Year
  Sex: Male

DRUGS (6)
  1. VIAGRA [Suspect]
     Dosage: 100 MG, ONCE (M-W-F) PRN
  2. LIPITOR [Suspect]
     Dosage: 40 MG, 1X/DAY
  3. ALLOPURINOL [Concomitant]
     Dosage: UNK
  4. FERROUS SULPHATE [Concomitant]
     Dosage: UNK
  5. ASPIRIN [Concomitant]
     Dosage: UNK
  6. NEXIUM [Concomitant]
     Dosage: UNK

REACTIONS (1)
  - Nasopharyngitis [Unknown]
